FAERS Safety Report 24214984 (Version 1)
Quarter: 2024Q3

REPORT INFORMATION
  Report Type: Spontaneous
  Country: CN (occurrence: CN)
  Receive Date: 20240815
  Receipt Date: 20240815
  Transmission Date: 20241017
  Serious: Yes (Hospitalization)
  Sender: NOVARTIS
  Company Number: CN-002147023-NVSC2024CN165432

PATIENT
  Age: 66 Year
  Sex: Male
  Weight: 74 kg

DRUGS (1)
  1. CARBAMAZEPINE [Suspect]
     Active Substance: CARBAMAZEPINE
     Indication: Muscle spasms
     Dosage: 1 DOSAGE FORM, QD
     Route: 048
     Dates: start: 20240301, end: 20240707

REACTIONS (9)
  - Drug eruption [Recovering/Resolving]
  - Erythema [Unknown]
  - Swelling face [Unknown]
  - Peripheral swelling [Unknown]
  - Swelling [Unknown]
  - Eczema [Unknown]
  - Rash [Recovered/Resolved]
  - Skin exfoliation [Unknown]
  - Off label use [Unknown]

NARRATIVE: CASE EVENT DATE: 20240701
